FAERS Safety Report 4920266-9 (Version None)
Quarter: 2006Q1

REPORT INFORMATION
  Report Type: 
  Country: None (occurrence: None)
  Receive Date: 20060223
  Receipt Date: 20060210
  Transmission Date: 20060701
  Serious: Yes (Hospitalization)
  Sender: FDA-Public Use
  Company Number: US-GLAXOSMITHKLINE-A0594608A

PATIENT
  Sex: Male

DRUGS (2)
  1. VALTREX [Suspect]
     Route: 048
  2. CLINDAMYCIN HCL [Concomitant]

REACTIONS (1)
  - MENINGITIS [None]
